FAERS Safety Report 7510273-4 (Version None)
Quarter: 2011Q2

REPORT INFORMATION
  Report Type: 
  Country: None (occurrence: None)
  Receive Date: 20110527
  Receipt Date: 20100126
  Transmission Date: 20111010
  Serious: No
  Sender: FDA-Public Use
  Company Number: US-BAYER-201012492NA

PATIENT
  Sex: Female

DRUGS (4)
  1. ANTIBIOTICS [Concomitant]
     Indication: SINUSITIS
  2. AVELOX [Suspect]
     Indication: PNEUMONIA
     Dosage: UNK
     Dates: start: 20080101, end: 20080101
  3. AVELOX [Suspect]
     Indication: SINUSITIS
     Dosage: UNK
     Dates: start: 20090101, end: 20090101
  4. AVELOX [Suspect]
     Dosage: UNK

REACTIONS (3)
  - PELVIC PAIN [None]
  - ARTHRALGIA [None]
  - PAIN IN EXTREMITY [None]
